FAERS Safety Report 8239742-9 (Version None)
Quarter: 2012Q1

REPORT INFORMATION
  Report Type: 
  Country: None (occurrence: None)
  Receive Date: 20120327
  Receipt Date: 20120327
  Transmission Date: 20120608
  Serious: Yes (Hospitalization)
  Sender: FDA-Public Use
  Company Number: None

PATIENT
  Sex: Male
  Weight: 119 kg

DRUGS (3)
  1. VINCRISTINE SULFATE [Suspect]
     Dosage: 10 MG
  2. METHOTREXATE [Suspect]
     Dosage: 2200 MG
  3. PEG-L- ASPARAGINASE (K- H) [Suspect]
     Dosage: 11000 MG

REACTIONS (11)
  - ORAL PAIN [None]
  - ORAL HERPES [None]
  - OROPHARYNGEAL PAIN [None]
  - PHARYNGEAL ULCERATION [None]
  - RENAL FAILURE ACUTE [None]
  - MOUTH ULCERATION [None]
  - TOXICITY TO VARIOUS AGENTS [None]
  - STOMATITIS [None]
  - ODYNOPHAGIA [None]
  - PYREXIA [None]
  - FEBRILE NEUTROPENIA [None]
